FAERS Safety Report 25448079 (Version 3)
Quarter: 2025Q3

REPORT INFORMATION
  Report Type: Spontaneous
  Country: JP (occurrence: JP)
  Receive Date: 20250617
  Receipt Date: 20250708
  Transmission Date: 20251021
  Serious: Yes (Other)
  Sender: MERCK SHARP & DOHME LLC
  Company Number: JP-009507513-2295757

PATIENT
  Age: 51 Year
  Sex: Female

DRUGS (3)
  1. KEYTRUDA [Suspect]
     Active Substance: PEMBROLIZUMAB
     Indication: Cervix carcinoma
  2. CISPLATIN [Suspect]
     Active Substance: CISPLATIN
     Indication: Cervix carcinoma
  3. Propylthiouracil oral administration [Concomitant]
     Indication: Graves^ disease

REACTIONS (9)
  - Hypothyroidism [Unknown]
  - Thyroiditis [Unknown]
  - Nausea [Unknown]
  - Hyperthyroidism [Unknown]
  - Diarrhoea [Unknown]
  - Neutropenia [Unknown]
  - Drug eruption [Recovered/Resolved]
  - Hypoaesthesia [Unknown]
  - Blood pressure increased [Unknown]
